FAERS Safety Report 12948111 (Version 2)
Quarter: 2017Q2

REPORT INFORMATION
  Report Type: Report from Study
  Country: JP (occurrence: JP)
  Receive Date: 20161117
  Receipt Date: 20170424
  Transmission Date: 20170830
  Serious: Yes (Death)
  Sender: FDA-Public Use
  Company Number: JP-HORIZON-BUP-0115-2016

PATIENT
  Age: 0 Year
  Sex: Female
  Weight: .56 kg

DRUGS (7)
  1. PITRESSIN [Concomitant]
     Active Substance: VASOPRESSIN
     Route: 030
     Dates: start: 20161112
  2. DOBUTAMINE HYDROCHLORIDE. [Concomitant]
     Active Substance: DOBUTAMINE HYDROCHLORIDE
     Route: 041
     Dates: start: 20161111
  3. INOVAN [Concomitant]
     Active Substance: DOPAMINE HYDROCHLORIDE
     Route: 042
     Dates: start: 20161111
  4. MEYLON [Concomitant]
     Active Substance: SODIUM BICARBONATE
     Route: 041
     Dates: start: 20161111
  5. INTRALIPOS [Concomitant]
     Active Substance: SOYBEAN OIL
     Indication: NUTRITIONAL SUPPLEMENTATION
     Route: 042
     Dates: start: 20161111
  6. BOSMIN [Concomitant]
     Active Substance: EPINEPHRINE
     Dates: start: 20161111
  7. BUPHENYL [Suspect]
     Active Substance: SODIUM PHENYLBUTYRATE
     Indication: UREA CYCLE ENZYME DEFICIENCY
     Dosage: 250 MG/KG DAILY (81.3 MG/KG 3 TIMES A DAY)
     Dates: start: 20161111, end: 20161114

REACTIONS (1)
  - Multiple organ dysfunction syndrome [Fatal]

NARRATIVE: CASE EVENT DATE: 20161113
